FAERS Safety Report 24734527 (Version 2)
Quarter: 2024Q4

REPORT INFORMATION
  Report Type: Spontaneous
  Country: FR (occurrence: FR)
  Receive Date: 20241214
  Receipt Date: 20241218
  Transmission Date: 20250114
  Serious: Yes (Hospitalization)
  Sender: TEVA
  Company Number: None

PATIENT
  Age: 61 Year
  Sex: Male
  Weight: 118 kg

DRUGS (8)
  1. LANSOPRAZOLE [Suspect]
     Active Substance: LANSOPRAZOLE
     Indication: Mitral valve incompetence
     Route: 048
     Dates: start: 20240429, end: 20241113
  2. EPLERENONE [Suspect]
     Active Substance: EPLERENONE
     Indication: Mitral valve incompetence
     Route: 048
     Dates: end: 20241113
  3. LOVENOX [Suspect]
     Active Substance: ENOXAPARIN SODIUM
     Indication: Thrombosis prophylaxis
     Dosage: 8000 IU ANTI-XA/ 0.8 ML, SOLUTION FOR INJECTION (S.C.) IN AMPOULE
     Route: 058
     Dates: start: 20240916
  4. BISOPROLOL [Suspect]
     Active Substance: BISOPROLOL
     Indication: Mitral valve incompetence
     Route: 048
     Dates: start: 20240928
  5. BISOPROLOL [Suspect]
     Active Substance: BISOPROLOL
     Indication: Mitral valve incompetence
     Dosage: BISOPROLOL FUMARATE
     Route: 048
     Dates: start: 20240429
  6. WARFARIN SODIUM [Suspect]
     Active Substance: WARFARIN SODIUM
     Indication: Mitral valve incompetence
     Dosage: SCORED TABLET
     Route: 048
     Dates: start: 20240906
  7. JARDIANCE [Suspect]
     Active Substance: EMPAGLIFLOZIN
     Indication: Mitral valve incompetence
     Route: 048
     Dates: start: 20240927, end: 20241113
  8. ENTRESTO [Suspect]
     Active Substance: SACUBITRIL\VALSARTAN
     Indication: Mitral valve incompetence
     Dosage: 49 MG/51 MG
     Route: 048
     Dates: start: 20240927

REACTIONS (2)
  - Neutropenia [Not Recovered/Not Resolved]
  - Agranulocytosis [Not Recovered/Not Resolved]

NARRATIVE: CASE EVENT DATE: 20240507
